FAERS Safety Report 20407178 (Version 1)
Quarter: 2022Q1

REPORT INFORMATION
  Report Type: Spontaneous
  Country: US (occurrence: None)
  Receive Date: 20220131
  Receipt Date: 20220131
  Transmission Date: 20220423
  Serious: Yes (Other)
  Sender: FDA-Public Use
  Company Number: None

PATIENT
  Age: 31 Year
  Sex: Female
  Weight: 81 kg

DRUGS (2)
  1. ERTAPENEM [Suspect]
     Active Substance: ERTAPENEM
     Indication: Acinetobacter bacteraemia
     Dosage: FREQUENCY : DAILY;?
     Route: 042
     Dates: start: 20211227, end: 20211227
  2. SODIUM CHLORIDE [Concomitant]
     Active Substance: SODIUM CHLORIDE
     Dates: start: 20211227, end: 20211227

REACTIONS (2)
  - Chest discomfort [None]
  - Throat irritation [None]

NARRATIVE: CASE EVENT DATE: 20211227
